FAERS Safety Report 9862300 (Version 1)
Quarter: 2014Q1

REPORT INFORMATION
  Report Type: Report from Study
  Country: US (occurrence: US)
  Receive Date: 20140203
  Receipt Date: 20140203
  Transmission Date: 20141002
  Serious: Yes (Other)
  Sender: FDA-Public Use
  Company Number: US-ROCHE-1320173

PATIENT
  Sex: Female
  Weight: 95.79 kg

DRUGS (26)
  1. AVASTIN [Suspect]
     Indication: NON-SMALL CELL LUNG CANCER
     Route: 041
     Dates: start: 200606
  2. AVASTIN [Suspect]
     Route: 042
     Dates: start: 20110815, end: 20110815
  3. AVASTIN [Suspect]
     Route: 042
     Dates: start: 20111111, end: 20111111
  4. AVASTIN [Suspect]
     Route: 042
     Dates: start: 20111202
  5. AVASTIN [Suspect]
     Route: 042
     Dates: start: 20111223
  6. AVASTIN [Suspect]
     Route: 042
     Dates: start: 20120116, end: 20120116
  7. AVASTIN [Suspect]
     Route: 042
     Dates: start: 20120320, end: 20120320
  8. ERLOTINIB [Suspect]
     Indication: PRODUCT USED FOR UNKNOWN INDICATION
     Route: 065
     Dates: start: 2009
  9. ERLOTINIB [Suspect]
     Route: 065
     Dates: start: 201005, end: 201011
  10. CATHFLO ACTIVASE [Suspect]
     Indication: PRODUCT USED FOR UNKNOWN INDICATION
     Route: 050
     Dates: start: 20120116
  11. ALIMTA [Suspect]
     Indication: NON-SMALL CELL LUNG CANCER
     Route: 042
     Dates: start: 20111223
  12. ALIMTA [Suspect]
     Route: 042
     Dates: start: 20120116, end: 20120116
  13. ALIMTA [Suspect]
     Route: 042
     Dates: start: 20120227
  14. ALIMTA [Suspect]
     Route: 042
     Dates: start: 20120320
  15. TAXOL [Concomitant]
  16. CARBOPLATIN [Concomitant]
  17. EMEND [Concomitant]
     Route: 065
  18. EMEND [Concomitant]
     Route: 065
     Dates: start: 20111202
  19. DEXAMETHASONE [Concomitant]
     Route: 042
  20. DEXAMETHASONE [Concomitant]
     Route: 042
     Dates: start: 20111223
  21. DEXAMETHASONE [Concomitant]
     Route: 042
  22. NEULASTA [Concomitant]
     Route: 058
  23. GEMZAR [Concomitant]
  24. ALOXI [Concomitant]
     Route: 042
  25. CYANOCOBALAMIN [Concomitant]
     Route: 030
  26. LUPRON DEPOT [Concomitant]
     Route: 030

REACTIONS (6)
  - Pancytopenia [Unknown]
  - Disease progression [Unknown]
  - Pain [Unknown]
  - Fatigue [Unknown]
  - Body temperature increased [Unknown]
  - Off label use [Unknown]
